FAERS Safety Report 8227471-7 (Version None)
Quarter: 2012Q1

REPORT INFORMATION
  Report Type: 
  Country: None (occurrence: None)
  Receive Date: 20120322
  Receipt Date: 20120309
  Transmission Date: 20120608
  Serious: Yes (Hospitalization, Other)
  Sender: FDA-Public Use
  Company Number: ES-AMGEN-ESPSP2012016533

PATIENT
  Age: 48 Year
  Sex: Female

DRUGS (2)
  1. ENBREL [Suspect]
     Indication: PSORIATIC ARTHROPATHY
     Dosage: 25 MG, 2X/WEEK
     Dates: start: 20080225, end: 20120201
  2. LEVOTHROID [Concomitant]
     Indication: HYPOTHYROIDISM
     Dosage: 100 UG, 1X/DAY
     Route: 048

REACTIONS (3)
  - ASTHENIA [None]
  - DEMYELINATION [None]
  - LOSS OF CONTROL OF LEGS [None]
